FAERS Safety Report 19202319 (Version 1)
Quarter: 2021Q2

REPORT INFORMATION
  Report Type: Spontaneous
  Country: TW (occurrence: TW)
  Receive Date: 20210430
  Receipt Date: 20210430
  Transmission Date: 20210717
  Serious: Yes (Other)
  Sender: FDA-Public Use
  Company Number: TW-AMGEN-TWNSP2021062877

PATIENT
  Age: 69 Year
  Sex: Male

DRUGS (10)
  1. LONSURF [Concomitant]
     Active Substance: TIPIRACIL HYDROCHLORIDE\TRIFLURIDINE
     Dosage: UNK
     Dates: start: 202101
  2. XELODA [Concomitant]
     Active Substance: CAPECITABINE
     Dosage: UNK
     Dates: start: 201808
  3. MVASI [Suspect]
     Active Substance: BEVACIZUMAB-AWWB
     Indication: RECTOSIGMOID CANCER
     Dosage: UNK
     Route: 065
     Dates: start: 202101
  4. XELODA [Concomitant]
     Active Substance: CAPECITABINE
     Dosage: UNK
     Dates: start: 201910
  5. CYRAMZA [Concomitant]
     Active Substance: RAMUCIRUMAB
     Dosage: UNK
     Dates: start: 201905
  6. ERBITUX [Concomitant]
     Active Substance: CETUXIMAB
     Dosage: UNK
     Dates: start: 201707
  7. STIVARGA [Concomitant]
     Active Substance: REGORAFENIB
     Dosage: UNK
     Dates: start: 202004
  8. FOLFIRI [Concomitant]
     Active Substance: FLUOROURACIL\IRINOTECAN\LEUCOVORIN
     Dosage: UNK
     Dates: start: 201707
  9. FOLFIRI [Concomitant]
     Active Substance: FLUOROURACIL\IRINOTECAN\LEUCOVORIN
     Dosage: UNK
     Dates: start: 202004
  10. FOLFOX 6 [Concomitant]
     Active Substance: FLUOROURACIL\LEUCOVORIN CALCIUM\OXALIPLATIN
     Dosage: UNK
     Dates: start: 201905

REACTIONS (6)
  - Thrombocytopenia [Unknown]
  - Leukopenia [Unknown]
  - Anaemia [Unknown]
  - Hepatic function abnormal [Unknown]
  - Decreased appetite [Unknown]
  - Fatigue [Unknown]
